FAERS Safety Report 20957838 (Version 1)
Quarter: 2022Q2

REPORT INFORMATION
  Report Type: Spontaneous
  Country: US (occurrence: US)
  Receive Date: 20220614
  Receipt Date: 20220614
  Transmission Date: 20220721
  Serious: No
  Sender: FDA-Public Use
  Company Number: US-HORIZON THERAPEUTICS-HZN-2022-002064

PATIENT
  Sex: Female

DRUGS (4)
  1. RAYOS [Suspect]
     Active Substance: PREDNISONE
     Indication: Product used for unknown indication
     Dosage: UNK
     Route: 065
  2. TYVASO [Suspect]
     Active Substance: TREPROSTINIL
     Indication: Pulmonary arterial hypertension
     Dosage: UNK, INHALATION DEVICE (TD-300/A), CONCENTRATION OF 0.6 MG/ML
     Dates: start: 20220226
  3. TYVASO [Suspect]
     Active Substance: TREPROSTINIL
     Dosage: 18 UG, QID, 3 BREATHS
  4. OXYGEN [Concomitant]
     Active Substance: OXYGEN
     Dosage: UNK, 6 LITERS (L)/MIN

REACTIONS (3)
  - Flushing [Unknown]
  - Oedema peripheral [Unknown]
  - Headache [Unknown]

NARRATIVE: CASE EVENT DATE: 20220101
